FAERS Safety Report 18337171 (Version 15)
Quarter: 2022Q3

REPORT INFORMATION
  Report Type: Other
  Country: DE (occurrence: None)
  Receive Date: 20201001
  Receipt Date: 20220818
  Transmission Date: 20221027
  Serious: Yes (Hospitalization, Other)
  Sender: FDA-Public Use
  Company Number: DE-ROCHE-2573787

PATIENT
  Sex: Female

DRUGS (6)
  1. OCREVUS [Suspect]
     Active Substance: OCRELIZUMAB
     Indication: Relapsing-remitting multiple sclerosis
     Dosage: THEN 600 MG ONCE IN 176 DAYS
     Route: 042
     Dates: start: 20191024
  2. OCREVUS [Suspect]
     Active Substance: OCRELIZUMAB
     Route: 042
  3. OCREVUS [Suspect]
     Active Substance: OCRELIZUMAB
     Route: 042
     Dates: start: 20191107
  4. OCREVUS [Suspect]
     Active Substance: OCRELIZUMAB
     Route: 042
     Dates: start: 20201013
  5. PFIZER-BIONTECH COVID-19 VACCINE [Suspect]
     Active Substance: TOZINAMERAN
     Indication: COVID-19 immunisation
     Route: 065
     Dates: start: 20210713, end: 20210713
  6. IBUPROFEN [Concomitant]
     Active Substance: IBUPROFEN

REACTIONS (20)
  - Osteochondrosis [Recovering/Resolving]
  - Arrhythmia [Recovered/Resolved]
  - Onychalgia [Recovered/Resolved]
  - Throat irritation [Recovered/Resolved]
  - Vertigo [Recovered/Resolved]
  - Paraesthesia [Recovered/Resolved]
  - Visual impairment [Recovered/Resolved]
  - Oral herpes [Recovered/Resolved]
  - Tremor [Recovered/Resolved]
  - Umbilical hernia [Recovered/Resolved]
  - Pruritus [Recovered/Resolved]
  - Nasopharyngitis [Recovered/Resolved]
  - Headache [Recovered/Resolved]
  - Pain in extremity [Recovered/Resolved]
  - Listless [Recovered/Resolved]
  - Fatigue [Recovered/Resolved]
  - Maternal exposure during pregnancy [Unknown]
  - COVID-19 [Recovered/Resolved]
  - Dyspnoea [Recovering/Resolving]
  - Cervical polyp [Not Recovered/Not Resolved]

NARRATIVE: CASE EVENT DATE: 20191024
